FAERS Safety Report 15981108 (Version 2)
Quarter: 2019Q1

REPORT INFORMATION
  Report Type: Spontaneous
  Country: DE (occurrence: DE)
  Receive Date: 20190219
  Receipt Date: 20190305
  Transmission Date: 20190418
  Serious: Yes (Hospitalization)
  Sender: FDA-Public Use
  Company Number: DE-OXFORD PHARMACEUTICALS, LLC-2019OXF00016

PATIENT
  Age: 93 Year
  Sex: Female

DRUGS (9)
  1. RAMIPRIL. [Concomitant]
     Active Substance: RAMIPRIL
     Dosage: 5 MG
     Route: 065
  2. L-THYROXINE [Concomitant]
     Active Substance: LEVOTHYROXINE
     Dosage: 75 ?G
     Route: 065
  3. ANASTROZOLE. [Concomitant]
     Active Substance: ANASTROZOLE
     Dosage: 1 MG
     Route: 065
  4. DOXEPIN [Suspect]
     Active Substance: DOXEPIN
     Indication: DEMENTIA
     Dosage: ^10-10-25 MG^
     Route: 065
  5. LACTULOSE. [Concomitant]
     Active Substance: LACTULOSE
     Dosage: 10 ML
     Route: 065
  6. RISPERIDONE. [Suspect]
     Active Substance: RISPERIDONE
     Indication: DEMENTIA
     Dosage: ^0.5-0.5-0.5 MG^
     Route: 065
  7. BROMAZEPAM/BROMAZANIL [Concomitant]
     Dosage: 4.5 UNK
     Route: 065
  8. ^ASS^ [Concomitant]
     Dosage: 100 MG
     Route: 065
  9. BUSPIRONE HYDROCHLORIDE. [Suspect]
     Active Substance: BUSPIRONE HYDROCHLORIDE
     Dosage: 5 MG
     Route: 065

REACTIONS (1)
  - Hypothermia [Recovered/Resolved]
